FAERS Safety Report 18303647 (Version 3)
Quarter: 2020Q4

REPORT INFORMATION
  Report Type: Spontaneous
  Country: CA (occurrence: CA)
  Receive Date: 20200924
  Receipt Date: 20201112
  Transmission Date: 20210113
  Serious: Yes (Other)
  Sender: FDA-Public Use
  Company Number: CA-CELLTRION INC.-2017CA011741

PATIENT

DRUGS (18)
  1. INFLECTRA [Suspect]
     Active Substance: INFLIXIMAB-DYYB
     Dosage: 300 MG, AT 0, 2, 6 WEEKS, THEN EVERY 8 WEEKS
     Route: 042
     Dates: start: 20181211, end: 20181211
  2. INFLECTRA [Suspect]
     Active Substance: INFLIXIMAB-DYYB
     Dosage: 300 MG, EVERY 7 WEEKS
     Route: 042
     Dates: start: 20191011
  3. INFLECTRA [Suspect]
     Active Substance: INFLIXIMAB-DYYB
     Dosage: 300 MG, EVERY 7 WEEKS
     Route: 042
     Dates: start: 20190703
  4. INFLECTRA [Suspect]
     Active Substance: INFLIXIMAB-DYYB
     Dosage: 300 MG, EVERY 7 WEEKS
     Route: 042
     Dates: start: 20190821
  5. INFLECTRA [Suspect]
     Active Substance: INFLIXIMAB-DYYB
     Dosage: 300 MG, EVERY 7 WEEKS
     Route: 042
     Dates: start: 20190328, end: 20191011
  6. INFLECTRA [Suspect]
     Active Substance: INFLIXIMAB-DYYB
     Dosage: 7.5 MG/KG, EVERY 7 WEEKS
     Route: 042
     Dates: start: 20200117
  7. MERCAPTOPURINE. [Concomitant]
     Active Substance: MERCAPTOPURINE
     Dosage: 50 MG, UNK
     Route: 065
  8. INFLECTRA [Suspect]
     Active Substance: INFLIXIMAB-DYYB
     Dosage: 300 MG, AT 0, 2, 6 WEEKS, THEN EVERY 8 WEEKS
     Route: 042
     Dates: start: 20190205, end: 20190205
  9. INFLECTRA [Suspect]
     Active Substance: INFLIXIMAB-DYYB
     Dosage: 300 MG, AT 0, 2, 6 WEEKS, THEN EVERY 8 WEEKS
     Route: 042
     Dates: start: 20180307, end: 20180307
  10. INFLECTRA [Suspect]
     Active Substance: INFLIXIMAB-DYYB
     Dosage: 300 MG, Q 0, 2, 6 WEEKS, THEN EVERY 8 WEEKS
     Route: 042
     Dates: start: 20170403, end: 20190205
  11. INFLECTRA [Suspect]
     Active Substance: INFLIXIMAB-DYYB
     Dosage: 300 MG, AT 0, 2, 6 WEEKS, THEN EVERY 8 WEEKS
     Route: 042
     Dates: start: 20171229, end: 20171229
  12. INFLECTRA [Suspect]
     Active Substance: INFLIXIMAB-DYYB
     Dosage: 300 MG, AT 0, 2, 6 WEEKS, THEN EVERY 8 WEEKS
     Route: 042
     Dates: start: 20181016, end: 20181016
  13. INFLECTRA [Suspect]
     Active Substance: INFLIXIMAB-DYYB
     Dosage: 7.5 MG/KG (600MG) , EVERY 7 WEEKS
     Route: 042
     Dates: start: 20201104
  14. INFLECTRA [Suspect]
     Active Substance: INFLIXIMAB-DYYB
     Indication: CROHN^S DISEASE
     Dosage: 300 MG, AT 0, 2, 6 WEEKS, THEN EVERY 8 WEEKS
     Route: 042
     Dates: start: 20170403, end: 20170403
  15. INFLECTRA [Suspect]
     Active Substance: INFLIXIMAB-DYYB
     Dosage: 300 MG, AT 0, 2, 6 WEEKS, THEN EVERY 8 WEEKS
     Route: 042
     Dates: start: 20180502, end: 20180502
  16. INFLECTRA [Suspect]
     Active Substance: INFLIXIMAB-DYYB
     Dosage: 7.5 MG/KG, EVERY 7 WEEKS
     Route: 042
     Dates: start: 20200306
  17. INFLECTRA [Suspect]
     Active Substance: INFLIXIMAB-DYYB
     Dosage: 7.5 MG/KG (600MG) , EVERY 7 WEEKS
     Route: 042
     Dates: start: 20200730
  18. INFLECTRA [Suspect]
     Active Substance: INFLIXIMAB-DYYB
     Dosage: 7.5 MG/KG (600MG) , EVERY 7 WEEKS
     Route: 042
     Dates: start: 20200917

REACTIONS (25)
  - Diarrhoea [Unknown]
  - Dyspepsia [Unknown]
  - Dyspepsia [Unknown]
  - Gastrointestinal disorder [Unknown]
  - Abscess [Unknown]
  - Muscular weakness [Unknown]
  - Pain [Unknown]
  - Arthralgia [Not Recovered/Not Resolved]
  - Asthenia [Unknown]
  - Intentional product use issue [Unknown]
  - Rectal abscess [Unknown]
  - Anal fissure [Unknown]
  - Off label use [Unknown]
  - Bronchitis [Not Recovered/Not Resolved]
  - Inflammation [Unknown]
  - Weight increased [Unknown]
  - Oropharyngeal pain [Recovering/Resolving]
  - Off label use [Unknown]
  - Incorrect dose administered [Unknown]
  - Infusion site pain [Unknown]
  - Inappropriate schedule of product administration [Not Recovered/Not Resolved]
  - Anal abscess [Not Recovered/Not Resolved]
  - Abscess limb [Unknown]
  - Condition aggravated [Unknown]
  - Aphthous ulcer [Unknown]

NARRATIVE: CASE EVENT DATE: 20170821
